FAERS Safety Report 8244934-9 (Version None)
Quarter: 2012Q1

REPORT INFORMATION
  Report Type: 
  Country: None (occurrence: None)
  Receive Date: 20120329
  Receipt Date: 20110922
  Transmission Date: 20120608
  Serious: No
  Sender: FDA-Public Use
  Company Number: US-MYLANLABS-2011S1020053

PATIENT
  Age: 64 Year
  Sex: Female
  Weight: 63.5 kg

DRUGS (4)
  1. FENTANYL-100 [Suspect]
     Dosage: Q3D
     Route: 062
     Dates: start: 20110701, end: 20110904
  2. PERCOCET [Concomitant]
     Indication: BREAKTHROUGH PAIN
  3. FENTANYL-100 [Suspect]
     Indication: PAIN
     Dosage: CHANGES PATCHES Q3D
     Route: 062
     Dates: start: 20110905
  4. OXYGEN [Concomitant]

REACTIONS (4)
  - THROAT TIGHTNESS [None]
  - DRUG INEFFECTIVE [None]
  - DYSPNOEA [None]
  - PAIN [None]
